FAERS Safety Report 9471821 (Version 1)
Quarter: 2013Q3

REPORT INFORMATION
  Report Type: Spontaneous
  Country: US (occurrence: None)
  Receive Date: 20130819
  Receipt Date: 20130819
  Transmission Date: 20140515
  Serious: Yes (Life-Threatening)
  Sender: FDA-Public Use
  Company Number: 2013P1017854

PATIENT
  Sex: Female

DRUGS (4)
  1. ZANTAC 2 ML VIAL [Suspect]
     Route: 042
  2. ERBITUX [Suspect]
  3. DECADRON [Suspect]
  4. BENADRYL [Suspect]

REACTIONS (2)
  - Apparent death [None]
  - Anaphylactic reaction [None]
